FAERS Safety Report 15030811 (Version 1)
Quarter: 2018Q2

REPORT INFORMATION
  Report Type: Report from Study
  Country: CA (occurrence: CA)
  Receive Date: 20180619
  Receipt Date: 20180619
  Transmission Date: 20180711
  Serious: Yes (Death)
  Sender: FDA-Public Use
  Company Number: CA-ACTELION-A-NJ2018-168510

PATIENT
  Age: 81 Year
  Sex: Female
  Weight: 54.42 kg

DRUGS (13)
  1. NORVASC [Concomitant]
     Active Substance: AMLODIPINE BESYLATE
  2. ALLOPURINOL. [Concomitant]
     Active Substance: ALLOPURINOL
  3. D-TABS [Concomitant]
     Active Substance: CHOLECALCIFEROL
  4. OPSUMIT [Suspect]
     Active Substance: MACITENTAN
     Indication: PULMONARY ARTERIAL HYPERTENSION
     Dosage: 10 MG, QD
     Route: 048
     Dates: start: 20180223
  5. POTASSIUM [Concomitant]
     Active Substance: POTASSIUM
  6. ADCIRCA [Concomitant]
     Active Substance: TADALAFIL
     Dosage: UNK
     Dates: start: 20071125
  7. LASIX [Concomitant]
     Active Substance: FUROSEMIDE
  8. COUMADIN [Concomitant]
     Active Substance: WARFARIN SODIUM
  9. VITALUX [Concomitant]
     Active Substance: MINERALS\VITAMINS
  10. ULTIBRO BREEZHALER [Concomitant]
     Active Substance: GLYCOPYRRONIUM\INDACATEROL
  11. CRESTOR [Concomitant]
     Active Substance: ROSUVASTATIN CALCIUM
  12. ATENOLOL. [Concomitant]
     Active Substance: ATENOLOL
  13. ALVESCO [Concomitant]
     Active Substance: CICLESONIDE

REACTIONS (3)
  - Weight decreased [Recovering/Resolving]
  - Decreased appetite [Recovering/Resolving]
  - Death [Fatal]

NARRATIVE: CASE EVENT DATE: 20180424
